FAERS Safety Report 6060444-1 (Version None)
Quarter: 2009Q1

REPORT INFORMATION
  Report Type: 
  Country: None (occurrence: None)
  Receive Date: 20090129
  Receipt Date: 20090119
  Transmission Date: 20090719
  Serious: Yes (Other)
  Sender: FDA-Public Use
  Company Number: 2008-03913

PATIENT
  Age: 63 Year
  Sex: Male
  Weight: 75.9 kg

DRUGS (4)
  1. VELCADE [Suspect]
     Indication: HODGKIN'S DISEASE
     Dosage: 1 MG/M2, INTRAVENOUS
     Route: 042
     Dates: start: 20050628, end: 20050722
  2. GEMCITABINE [Suspect]
     Indication: HODGKIN'S DISEASE
     Dosage: 800 MG/M2
     Dates: start: 20050628, end: 20050719
  3. GEMCITABINE [Suspect]
  4. GLUCOVANCE [Concomitant]

REACTIONS (2)
  - LUNG SQUAMOUS CELL CARCINOMA STAGE UNSPECIFIED [None]
  - THROMBOCYTOPENIA [None]
